FAERS Safety Report 15227367 (Version 1)
Quarter: 2018Q3

REPORT INFORMATION
  Report Type: Spontaneous
  Country: IL (occurrence: IL)
  Receive Date: 20180801
  Receipt Date: 20180801
  Transmission Date: 20181010
  Serious: Yes (Other)
  Sender: FDA-Public Use
  Company Number: IL-SA-2018SA203737

PATIENT
  Age: 63 Year
  Sex: Female

DRUGS (1)
  1. CLEXANE SYRINGES [Suspect]
     Active Substance: ENOXAPARIN SODIUM
     Indication: PRODUCT USED FOR UNKNOWN INDICATION

REACTIONS (6)
  - Vena cava thrombosis [Recovering/Resolving]
  - Back pain [Recovering/Resolving]
  - Metastases to liver [Recovering/Resolving]
  - Arthralgia [Unknown]
  - Diarrhoea [Unknown]
  - Metastases to peritoneum [Recovering/Resolving]

NARRATIVE: CASE EVENT DATE: 201707
